FAERS Safety Report 9907332 (Version 2)
Quarter: 2014Q1

REPORT INFORMATION
  Report Type: Spontaneous
  Country: US (occurrence: US)
  Receive Date: 20140218
  Receipt Date: 20140311
  Transmission Date: 20141002
  Serious: Yes (Hospitalization)
  Sender: FDA-Public Use
  Company Number: US-GILEAD-2014-0094652

PATIENT
  Sex: Female

DRUGS (22)
  1. LETAIRIS [Suspect]
     Indication: PULMONARY ARTERIAL HYPERTENSION
     Dosage: 10 MG, QD
     Route: 048
     Dates: start: 20131005
  2. LOPERAMIDE [Concomitant]
  3. ASPIRIN [Concomitant]
  4. COLACE [Concomitant]
  5. MAGNESIUM OXIDE [Concomitant]
  6. MULTIVITAMIN                       /00097801/ [Concomitant]
  7. TIOTROPIUM [Concomitant]
  8. VITAMIN D                          /00107901/ [Concomitant]
  9. LISINOPRIL [Concomitant]
  10. NITROGLYCERIN [Concomitant]
  11. SERTRALINE [Concomitant]
  12. BUDESONIDE [Concomitant]
  13. METOPROLOL [Concomitant]
  14. DOXYCYCLINE [Concomitant]
  15. BUMEX [Concomitant]
  16. WARFARIN [Concomitant]
  17. LANTUS [Concomitant]
  18. MIRALAX                            /00754501/ [Concomitant]
  19. NEURONTIN [Concomitant]
  20. NOVOLOG [Concomitant]
  21. PREDNISONE [Concomitant]
  22. ALBUTEROL                          /00139501/ [Concomitant]

REACTIONS (1)
  - Malaise [Unknown]
